FAERS Safety Report 13082501 (Version 1)
Quarter: 2017Q1

REPORT INFORMATION
  Report Type: Report from Study
  Country: US (occurrence: US)
  Receive Date: 20170103
  Receipt Date: 20170103
  Transmission Date: 20170428
  Serious: Yes (Death, Other)
  Sender: FDA-Public Use
  Company Number: US-GILEAD-2016-0229995

PATIENT
  Age: 75 Year
  Sex: Female

DRUGS (5)
  1. IDELALISIB [Suspect]
     Active Substance: IDELALISIB
     Indication: B-CELL LYMPHOMA
  2. IDELALISIB [Suspect]
     Active Substance: IDELALISIB
     Indication: DIFFUSE LARGE B-CELL LYMPHOMA
     Dosage: 150 MG, BID
     Route: 048
     Dates: start: 20141113, end: 201612
  3. IDELALISIB [Suspect]
     Active Substance: IDELALISIB
     Indication: B-CELL LYMPHOMA
  4. OXYGEN. [Concomitant]
     Active Substance: OXYGEN
     Dosage: 2 L, CONTINUOUSLY
     Dates: start: 201406
  5. IDELALISIB [Suspect]
     Active Substance: IDELALISIB
     Indication: NEOPLASM

REACTIONS (4)
  - Death [Fatal]
  - Lung infection [Unknown]
  - Haemoptysis [Unknown]
  - Cough [Unknown]

NARRATIVE: CASE EVENT DATE: 20160813
